FAERS Safety Report 13960164 (Version 2)
Quarter: 2017Q3

REPORT INFORMATION
  Report Type: Spontaneous
  Country: JP (occurrence: JP)
  Receive Date: 20170912
  Receipt Date: 20170914
  Transmission Date: 20171128
  Serious: Yes (Death)
  Sender: FDA-Public Use
  Company Number: JP-BRACCO-2017JP04117

PATIENT
  Age: 58 Year
  Sex: Female

DRUGS (1)
  1. IOPAMIRON [Suspect]
     Active Substance: IOPAMIDOL
     Indication: COMPUTERISED TOMOGRAM
     Dosage: 54 ML, SINGLE
     Route: 040
     Dates: start: 20170904, end: 20170904

REACTIONS (1)
  - Shock [Fatal]

NARRATIVE: CASE EVENT DATE: 20170904
